FAERS Safety Report 20843669 (Version 1)
Quarter: 2022Q2

REPORT INFORMATION
  Report Type: Spontaneous
  Country: US (occurrence: US)
  Receive Date: 20220518
  Receipt Date: 20220518
  Transmission Date: 20220721
  Serious: Yes (Hospitalization, Other)
  Sender: FDA-Public Use
  Company Number: US-AMGEN-USASP2022080791

PATIENT
  Age: 72 Year
  Sex: Male

DRUGS (2)
  1. DARBEPOETIN ALFA [Suspect]
     Active Substance: DARBEPOETIN ALFA
     Indication: Anaemia
     Dosage: UNK
     Route: 065
  2. WARFARIN [Concomitant]
     Active Substance: WARFARIN

REACTIONS (5)
  - Refractory cytopenia with unilineage dysplasia [Unknown]
  - Cerebral infarction [Unknown]
  - Double stranded DNA antibody positive [Unknown]
  - Platelet count decreased [Unknown]
  - International normalised ratio decreased [Unknown]
